FAERS Safety Report 8395584 (Version 2)
Quarter: 2013Q1

REPORT INFORMATION
  Report Type: Spontaneous
  Country: US (occurrence: US)
  Receive Date: 20120208
  Receipt Date: 20130222
  Transmission Date: 20140127
  Serious: Yes (Other)
  Sender: FDA-Public Use
  Company Number: US-ROCHE-1037332

PATIENT
  Sex: Female
  Weight: 59.02 kg

DRUGS (2)
  1. ACCUTANE [Suspect]
     Indication: ACNE CYSTIC
     Route: 065
     Dates: start: 1989, end: 1991
  2. BIRTH CONTROL (UNK INGREDIENTS) [Concomitant]

REACTIONS (6)
  - Colitis ulcerative [Unknown]
  - Injury [Unknown]
  - Inflammatory bowel disease [Unknown]
  - Colitis [Unknown]
  - Depression [Unknown]
  - Irritable bowel syndrome [Unknown]
